FAERS Safety Report 7466404-8 (Version None)
Quarter: 2011Q2

REPORT INFORMATION
  Report Type: 
  Country: None (occurrence: None)
  Receive Date: 20110509
  Receipt Date: 20110505
  Transmission Date: 20111010
  Serious: No
  Sender: FDA-Public Use
  Company Number: US-PFIZER INC-2010177577

PATIENT
  Sex: Male
  Weight: 99.79 kg

DRUGS (2)
  1. DOXAZOSIN [Concomitant]
     Indication: PROSTATE CANCER
     Dosage: 2 MG, UNK
  2. VIAGRA [Suspect]
     Indication: ERECTILE DYSFUNCTION
     Dosage: 100 MG, AS NEEDED
     Dates: start: 20101122, end: 20101130

REACTIONS (1)
  - DRUG INEFFECTIVE [None]
